FAERS Safety Report 19587928 (Version 3)
Quarter: 2021Q4

REPORT INFORMATION
  Report Type: Report from Study
  Country: CN (occurrence: CN)
  Receive Date: 20210721
  Receipt Date: 20211103
  Transmission Date: 20220303
  Serious: Yes (Hospitalization)
  Sender: FDA-Public Use
  Company Number: CN-KARYOPHARM-2021KPT000646

PATIENT
  Age: 55 Year
  Sex: Male

DRUGS (10)
  1. SELINEXOR [Suspect]
     Active Substance: SELINEXOR
     Indication: Angiocentric lymphoma
     Dosage: 60 MG, SINGLE
     Route: 048
     Dates: start: 20210422, end: 20210422
  2. SELINEXOR [Suspect]
     Active Substance: SELINEXOR
     Dosage: 40 MG, SINGLE
     Route: 048
     Dates: start: 20210429, end: 20210429
  3. SELINEXOR [Suspect]
     Active Substance: SELINEXOR
     Dosage: 60 MG, SINGLE
     Route: 048
     Dates: start: 20210513, end: 20210513
  4. SELINEXOR [Suspect]
     Active Substance: SELINEXOR
     Dosage: 60 MG, SINGLE
     Route: 048
     Dates: start: 20210520, end: 20210520
  5. OXALIPLATIN [Suspect]
     Active Substance: OXALIPLATIN
     Indication: Angiocentric lymphoma
     Dosage: 223.6 MG, SINGLE
     Route: 042
     Dates: start: 20210422, end: 20210422
  6. OXALIPLATIN [Suspect]
     Active Substance: OXALIPLATIN
     Dosage: 219.7 MG, SINGLE
     Route: 042
     Dates: start: 20210513, end: 20210513
  7. GEMCITABINE [Suspect]
     Active Substance: GEMCITABINE
     Indication: Angiocentric lymphoma
     Dosage: 1.72 G, SINGLE
     Route: 042
     Dates: start: 20210422, end: 20210422
  8. GEMCITABINE [Suspect]
     Active Substance: GEMCITABINE
     Dosage: 0.86 G, SINGLE
     Route: 042
     Dates: start: 20210429, end: 20210429
  9. GEMCITABINE [Suspect]
     Active Substance: GEMCITABINE
     Dosage: 1.69 G, SINGLE
     Route: 042
     Dates: start: 20210513, end: 20210513
  10. GEMCITABINE [Suspect]
     Active Substance: GEMCITABINE
     Dosage: 1.69 G, SINGLE
     Route: 042
     Dates: start: 20210520, end: 20210520

REACTIONS (2)
  - Platelet count decreased [Recovered/Resolved]
  - Platelet count decreased [Recovered/Resolved]

NARRATIVE: CASE EVENT DATE: 20210501
